FAERS Safety Report 6662647-1 (Version None)
Quarter: 2010Q1

REPORT INFORMATION
  Report Type: 
  Country: None (occurrence: None)
  Receive Date: 20100329
  Receipt Date: 20100317
  Transmission Date: 20100710
  Serious: Yes (Hospitalization)
  Sender: FDA-Public Use
  Company Number: 8052809

PATIENT
  Sex: Female
  Weight: 59 kg

DRUGS (25)
  1. CERTOLIZUMAB PEGOL (CERTOLIZUMAB PEGOL) [Suspect]
     Indication: RHEUMATOID ARTHRITIS
     Dosage: SEE IMAGE
     Route: 058
     Dates: start: 20050614, end: 20060529
  2. CERTOLIZUMAB PEGOL (CERTOLIZUMAB PEGOL) [Suspect]
     Indication: RHEUMATOID ARTHRITIS
     Dosage: SEE IMAGE
     Route: 058
     Dates: start: 20060613, end: 20080108
  3. CERTOLIZUMAB PEGOL (CERTOLIZUMAB PEGOL) [Suspect]
     Indication: RHEUMATOID ARTHRITIS
     Dosage: SEE IMAGE
     Route: 058
     Dates: start: 20080121
  4. METHOTREXATE [Concomitant]
  5. FOLIC ACID [Concomitant]
  6. PARACETAMOL [Concomitant]
  7. VOLTAREN [Concomitant]
  8. LIGNOCAINE /00033401/ [Concomitant]
  9. SIMVASTATIN [Concomitant]
  10. CARTI A /00002701/ [Concomitant]
  11. TIMOLOL [Concomitant]
  12. RHEUMON [Concomitant]
  13. FORTISIP [Concomitant]
  14. OMEPRAZOLE [Concomitant]
  15. LEVOTHYROXINE SODIUM [Concomitant]
  16. COLECALCIFEROL [Concomitant]
  17. FOSAMAX PLUS D [Concomitant]
  18. LACTULOSE [Concomitant]
  19. DOCUSATE [Concomitant]
  20. XALATAN [Concomitant]
  21. FRUSEMIDE [Concomitant]
  22. SPIRONOLACTONE [Concomitant]
  23. DICLOFENAC SODIUM [Concomitant]
  24. OMEPRAZOLE [Concomitant]
  25. COSOPT [Concomitant]

REACTIONS (16)
  - ANAEMIA MACROCYTIC [None]
  - CONSTIPATION [None]
  - DECREASED APPETITE [None]
  - DIVERTICULUM INTESTINAL [None]
  - FEMUR FRACTURE [None]
  - GASTROINTESTINAL HAEMORRHAGE [None]
  - GLAUCOMA [None]
  - HYPOTHYROIDISM [None]
  - MALAISE [None]
  - OEDEMA PERIPHERAL [None]
  - OSTEOPOROSIS [None]
  - PNEUMONIA [None]
  - RESPIRATORY TRACT INFECTION [None]
  - STASIS DERMATITIS [None]
  - TIBIA FRACTURE [None]
  - WRIST FRACTURE [None]
